FAERS Safety Report 17998167 (Version 1)
Quarter: 2020Q3

REPORT INFORMATION
  Report Type: Spontaneous
  Country: CN (occurrence: CN)
  Receive Date: 20200708
  Receipt Date: 20200708
  Transmission Date: 20201103
  Serious: Yes (Hospitalization)
  Sender: FDA-Public Use
  Company Number: CN-BAXTER-2020BAX013722

PATIENT
  Age: 2 Year
  Sex: Male
  Weight: 12.9 kg

DRUGS (6)
  1. 0.9% SODIUM CHLORIDE INJECTION [Suspect]
     Active Substance: SODIUM CHLORIDE
     Indication: MEDICATION DILUTION
     Dosage: 0.9% NS+ ENDOXAN
     Route: 041
     Dates: start: 20200605, end: 20200606
  2. VINCRISTINE SULFATE. [Suspect]
     Active Substance: VINCRISTINE SULFATE
     Indication: LYMPHOMA
     Dosage: VINCRISTINE POWDER INJECTION + WATER FOR INJECTION
     Route: 041
     Dates: start: 20200605, end: 20200605
  3. 0.9% SODIUM CHLORIDE INJECTION [Suspect]
     Active Substance: SODIUM CHLORIDE
     Dosage: 0.9% NS + DOXORUBICIN LIPOSOME INJECTION
     Route: 041
     Dates: start: 20200605, end: 20200608
  4. STERILE WATER FOR INJECTION [Suspect]
     Active Substance: WATER
     Indication: MEDICATION DILUTION
     Dosage: WATER FOR INJECTION + VINCRISTINE POWDER INJECTION
     Route: 041
     Dates: start: 20200605, end: 20200605
  5. ENDOXAN [Suspect]
     Active Substance: CYCLOPHOSPHAMIDE
     Indication: LYMPHOMA
     Dosage: ENDOXAN +0.9% NS
     Route: 041
     Dates: start: 20200605, end: 20200606
  6. DOXORUBICIN LIPOSOME [Suspect]
     Active Substance: DOXORUBICIN
     Indication: LYMPHOMA
     Dosage: DOXORUBICIN LIPOSOME INJECTION + 0.9% NS
     Route: 041
     Dates: start: 20200605, end: 20200608

REACTIONS (1)
  - Leukopenia [Recovered/Resolved]

NARRATIVE: CASE EVENT DATE: 20200613
